FAERS Safety Report 10375943 (Version 1)
Quarter: 2014Q3

REPORT INFORMATION
  Report Type: Report from Study
  Country: US (occurrence: US)
  Receive Date: 20140811
  Receipt Date: 20140811
  Transmission Date: 20150326
  Serious: Yes (Hospitalization)
  Sender: FDA-Public Use
  Company Number: US-ACTELION-A-US2014-103475

PATIENT
  Age: 60 Year
  Sex: Male

DRUGS (3)
  1. MACITENTAN [Suspect]
     Active Substance: MACITENTAN
     Indication: PULMONARY ARTERIAL HYPERTENSION
     Dosage: 10 MG, QD
     Route: 048
     Dates: start: 20140129
  2. ASPIRIN. [Concomitant]
     Active Substance: ASPIRIN
  3. VENTAVIS [Suspect]
     Active Substance: ILOPROST
     Indication: PULMONARY ARTERIAL HYPERTENSION
     Dosage: 4-6X/DAY
     Route: 055
     Dates: start: 20121227

REACTIONS (4)
  - Chest pain [Unknown]
  - Blood count abnormal [Unknown]
  - Hypertension [Unknown]
  - Blood iron decreased [Unknown]
